FAERS Safety Report 4747744-X (Version None)
Quarter: 2005Q3

REPORT INFORMATION
  Report Type: 
  Country: None (occurrence: None)
  Receive Date: 20050817
  Receipt Date: 20050817
  Transmission Date: 20060218
  Serious: No
  Sender: FDA-Public Use
  Company Number: None

PATIENT
  Sex: Female
  Weight: 101 kg

DRUGS (1)
  1. NAPROSYN [Suspect]
     Dosage: 250MG BID PRN ORAL
     Route: 048
     Dates: start: 20050104, end: 20050425

REACTIONS (1)
  - OEDEMA PERIPHERAL [None]
